FAERS Safety Report 18122691 (Version 1)
Quarter: 2020Q3

REPORT INFORMATION
  Report Type: Report from Study
  Country: RU (occurrence: RU)
  Receive Date: 20200807
  Receipt Date: 20200807
  Transmission Date: 20201103
  Serious: Yes (Other)
  Sender: FDA-Public Use
  Company Number: RU-TAIHO ONCOLOGY  INC-IM-2020-00614

PATIENT
  Age: 70 Year
  Sex: Female
  Weight: 67 kg

DRUGS (18)
  1. ENTEROL [Concomitant]
     Indication: DIARRHOEA
     Dosage: 2 DF, TID
     Route: 048
     Dates: start: 20200206, end: 20200220
  2. ONDANSETRON [Concomitant]
     Active Substance: ONDANSETRON
     Indication: NAUSEA
     Dosage: 8 MG, TID
     Route: 048
     Dates: start: 20200206, end: 20200214
  3. CONCOR [Concomitant]
     Active Substance: BISOPROLOL FUMARATE
     Indication: HYPERTENSION
     Dosage: 5 MG, QD
     Route: 048
     Dates: start: 2014
  4. MOTILIUM [Concomitant]
     Active Substance: DOMPERIDONE
     Indication: PROPHYLAXIS OF NAUSEA AND VOMITING
     Dosage: 10 MG, BID
     Route: 048
     Dates: start: 20200206, end: 20200214
  5. CARDIOMAGNYL [Concomitant]
     Active Substance: ASPIRIN\MAGNESIUM HYDROXIDE
     Indication: MYOCARDIAL ISCHAEMIA
     Dosage: 75 MG, QD
     Route: 048
     Dates: start: 2010
  6. LONSURF [Suspect]
     Active Substance: TIPIRACIL HYDROCHLORIDE\TRIFLURIDINE
     Dosage: 45 MG (35 MG/M2) BID, ON DAYS 1?5 AND 8?12 OF EACH 28?DAY CYCLE
     Route: 048
     Dates: start: 20200305, end: 20200607
  7. LONSURF [Suspect]
     Active Substance: TIPIRACIL HYDROCHLORIDE\TRIFLURIDINE
     Dosage: 55 MG (35 MG/M2) BID, ON DAYS 1?5 AND 8?12 OF EACH 28?DAY CYCLE
     Route: 048
     Dates: start: 20191212, end: 20200121
  8. BEVACIZUMAB. [Suspect]
     Active Substance: BEVACIZUMAB
     Dosage: 365 MG (5 MG/KG), ON DAYS 1 AND 15 OF EACH 28?DAY CYCLE
     Route: 042
     Dates: start: 20200305, end: 20200527
  9. METFORMIN [Concomitant]
     Active Substance: METFORMIN HYDROCHLORIDE
     Indication: DIABETES MELLITUS
     Dosage: 500 MG, BID
     Route: 048
     Dates: start: 2012
  10. BETAHISTINE [Concomitant]
     Active Substance: BETAHISTINE
     Indication: AORTIC ARTERIOSCLEROSIS
     Dosage: 24 MG, BID
     Route: 048
     Dates: start: 2018
  11. BETAHISTINE [Concomitant]
     Active Substance: BETAHISTINE
     Indication: ARTERIOSCLEROSIS CORONARY ARTERY
  12. SMECTA [Concomitant]
     Active Substance: MONTMORILLONITE
     Indication: DIARRHOEA
     Dosage: 1 DF, TID
     Route: 048
     Dates: start: 20200206, end: 20200214
  13. NOLPAZA [Concomitant]
     Active Substance: PANTOPRAZOLE SODIUM
     Indication: PROPHYLAXIS AGAINST GASTROINTESTINAL ULCER
     Dosage: 20 MG, BID
     Route: 048
     Dates: start: 20200206
  14. BEVACIZUMAB. [Suspect]
     Active Substance: BEVACIZUMAB
     Indication: RECTAL ADENOCARCINOMA
     Dosage: 400 MG (5 MG/KG), ON DAYS 1 AND 15 OF EACH 28?DAY CYCLE
     Route: 042
     Dates: start: 20191128, end: 20200110
  15. DEXAMETHASONE. [Concomitant]
     Active Substance: DEXAMETHASONE
     Indication: NAUSEA
     Dosage: 4 MG, BID
     Route: 048
     Dates: start: 20200206, end: 20200214
  16. LONSURF [Suspect]
     Active Substance: TIPIRACIL HYDROCHLORIDE\TRIFLURIDINE
     Indication: RECTAL ADENOCARCINOMA
     Dosage: 65 MG (35 MG/M2) BID, ON DAYS 1?5 AND 8?12 OF EACH 28?DAY CYCLE
     Route: 048
     Dates: start: 20191114, end: 20191125
  17. AMLODIPINE [Concomitant]
     Active Substance: AMLODIPINE BESYLATE
     Indication: HYPERTENSION
     Dosage: 2.5 MG, BID
     Route: 048
     Dates: start: 2014
  18. LOSARTAN. [Concomitant]
     Active Substance: LOSARTAN
     Indication: HYPERTENSION
     Dosage: 25 MG, QD
     Route: 048
     Dates: start: 2014

REACTIONS (1)
  - Blood creatinine increased [Recovered/Resolved]

NARRATIVE: CASE EVENT DATE: 20200206
